FAERS Safety Report 14213198 (Version 1)
Quarter: 2017Q4

REPORT INFORMATION
  Report Type: Spontaneous
  Country: JP (occurrence: JP)
  Receive Date: 20171122
  Receipt Date: 20171122
  Transmission Date: 20180321
  Serious: Yes (Hospitalization, Other)
  Sender: FDA-Public Use
  Company Number: JP-PFIZER INC-2017500911

PATIENT
  Age: 21 Year
  Sex: Female

DRUGS (1)
  1. SIROLIMUS. [Suspect]
     Active Substance: SIROLIMUS
     Indication: GORHAM^S DISEASE
     Dosage: UNK
     Route: 048

REACTIONS (6)
  - Intracranial pressure increased [Unknown]
  - Ilium fracture [Unknown]
  - Pelvic abscess [Recovered/Resolved]
  - Headache [Recovering/Resolving]
  - Visual acuity reduced [Recovering/Resolving]
  - Papilloedema [Unknown]
